FAERS Safety Report 9249040 (Version 1)
Quarter: 2013Q1

REPORT INFORMATION
  Report Type: Spontaneous
  Country: US (occurrence: None)
  Receive Date: 20130305
  Receipt Date: 20130305
  Transmission Date: 20140127
  Serious: Yes (Other)
  Sender: FDA-Public Use
  Company Number: 163-21880-12061840

PATIENT
  Age: 69 Year
  Sex: Female

DRUGS (3)
  1. REVLIMID [Suspect]
     Indication: PLASMA CELL MYELOMA
     Dosage: 25 MG, 14 IN 21 D, PO
     Dates: start: 20120225, end: 20120331
  2. BENDAMUSTINE (BENDAMUSTINE) [Concomitant]
  3. TYLENOL WITH CODEINE (PANADEINE CO) [Concomitant]

REACTIONS (2)
  - Diarrhoea [None]
  - Plasma cell myeloma [None]
